FAERS Safety Report 8805991 (Version 2)
Quarter: 2012Q4

REPORT INFORMATION
  Report Type: 
  Country: US (occurrence: US)
  Receive Date: 20120925
  Receipt Date: 20120929
  Transmission Date: 20130627
  Serious: Yes (Life-Threatening, Hospitalization, Other)
  Sender: FDA-Public Use
  Company Number: US-009507513-1209USA002483

PATIENT
  Age: 46 Year
  Sex: Male
  Weight: 104.31 kg

DRUGS (3)
  1. VICTRELIS [Suspect]
     Indication: HEPATITIS C
     Dosage: 200 mg, bid
     Route: 048
     Dates: start: 20120608, end: 20120819
  2. REBETOL [Suspect]
     Indication: HEPATITIS C
  3. PEGASYS [Concomitant]
     Indication: HEPATITIS C

REACTIONS (8)
  - Pulmonary embolism [Not Recovered/Not Resolved]
  - Nausea [Not Recovered/Not Resolved]
  - Diarrhoea [Not Recovered/Not Resolved]
  - Thrombocytopenia [Unknown]
  - Renal cyst [Unknown]
  - Hyponatraemia [Unknown]
  - Pancreatic mass [Unknown]
  - Pneumonia [Unknown]
